FAERS Safety Report 10049426 (Version 1)
Quarter: 2014Q2

REPORT INFORMATION
  Report Type: Spontaneous
  Country: CA (occurrence: CA)
  Receive Date: 20140401
  Receipt Date: 20140401
  Transmission Date: 20141212
  Serious: Yes (Other)
  Sender: FDA-Public Use
  Company Number: CA-JNJFOC-20140316245

PATIENT
  Age: 85 Year
  Sex: Female
  Weight: 48 kg

DRUGS (17)
  1. XARELTO [Suspect]
     Indication: PRODUCT USED FOR UNKNOWN INDICATION
     Route: 048
  2. ACETAMINOPHEN [Concomitant]
     Route: 065
  3. HALOPERIDOL [Concomitant]
     Route: 065
  4. PERINDOPRIL [Concomitant]
     Route: 065
  5. TRAZODONE [Concomitant]
     Route: 065
  6. MAGNESIUM HYDROXIDE [Concomitant]
     Route: 065
  7. METOCLOPRAMIDE [Concomitant]
     Route: 065
  8. PANTOPRAZOLE [Concomitant]
     Route: 065
  9. POTASSIUM CHLORIDE [Concomitant]
     Route: 065
  10. RANITIDINE [Concomitant]
     Route: 065
  11. SENNOSIDE [Concomitant]
     Route: 065
  12. HYDROMORPHONE [Concomitant]
     Route: 065
  13. DILTIAZEM CD [Concomitant]
     Route: 065
  14. ALLOPURINOL [Concomitant]
     Route: 065
  15. CEPHALEXIN [Concomitant]
     Route: 065
  16. LACTULOSE SYRUP [Concomitant]
     Route: 065
  17. HYDROMORPHONE [Concomitant]
     Route: 065

REACTIONS (1)
  - Thrombophlebitis superficial [Recovered/Resolved]
